FAERS Safety Report 16751531 (Version 2)
Quarter: 2019Q4

REPORT INFORMATION
  Report Type: Report from Study
  Country: RU (occurrence: RU)
  Receive Date: 20190828
  Receipt Date: 20191002
  Transmission Date: 20200122
  Serious: Yes (Hospitalization, Other)
  Sender: FDA-Public Use
  Company Number: RU-ASTRAZENECA-2019SF20609

PATIENT
  Age: 73 Year
  Sex: Female
  Weight: 65 kg

DRUGS (6)
  1. INDAPAMIDE. [Concomitant]
     Active Substance: INDAPAMIDE
  2. THROMBO ASS [Concomitant]
     Active Substance: ASPIRIN
  3. LIPRIMAR [Concomitant]
     Active Substance: ATORVASTATIN CALCIUM
  4. INSULIN [Concomitant]
     Active Substance: INSULIN NOS
  5. NEBIVOLOL. [Concomitant]
     Active Substance: NEBIVOLOL
  6. FORXIGA [Suspect]
     Active Substance: DAPAGLIFLOZIN
     Indication: TYPE 2 DIABETES MELLITUS
     Route: 048

REACTIONS (6)
  - Blood glucose increased [Recovered/Resolved]
  - Hypoaesthesia [Not Recovered/Not Resolved]
  - Arterial occlusive disease [Unknown]
  - Memory impairment [Not Recovered/Not Resolved]
  - Intentional product misuse [Recovered/Resolved]
  - Ischaemic stroke [Recovered/Resolved with Sequelae]

NARRATIVE: CASE EVENT DATE: 20180929
